FAERS Safety Report 15734090 (Version 1)
Quarter: 2018Q4

REPORT INFORMATION
  Report Type: Spontaneous
  Country: US (occurrence: US)
  Receive Date: 20181217
  Receipt Date: 20181217
  Transmission Date: 20190205
  Serious: No
  Sender: FDA-Public Use
  Company Number: None

PATIENT
  Age: 23 Year
  Sex: Female
  Weight: 54.43 kg

DRUGS (1)
  1. MIRENA [Suspect]
     Active Substance: LEVONORGESTREL

REACTIONS (7)
  - Amenorrhoea [None]
  - Dyspareunia [None]
  - Loss of libido [None]
  - Stress [None]
  - Menorrhagia [None]
  - Insomnia [None]
  - Abdominal pain [None]

NARRATIVE: CASE EVENT DATE: 20150301
